FAERS Safety Report 5115974-3 (Version None)
Quarter: 2006Q3

REPORT INFORMATION
  Report Type: 
  Country: None (occurrence: None)
  Receive Date: 20060927
  Receipt Date: 20060113
  Transmission Date: 20061208
  Serious: No
  Sender: FDA-Public Use
  Company Number: US-BRISTOL-MYERS SQUIBB COMPANY-13248570

PATIENT
  Age: 65 Year
  Sex: Male
  Weight: 90 kg

DRUGS (9)
  1. DEFINITY [Suspect]
     Route: 042
     Dates: start: 20060112, end: 20060112
  2. PLAVIX [Concomitant]
  3. ASPIRIN [Concomitant]
  4. UROXATRAL [Concomitant]
  5. ZOCOR [Concomitant]
  6. NEURONTIN [Concomitant]
  7. PREVACID [Concomitant]
  8. BUMEX [Concomitant]
  9. POTASSIUM CHLORIDE [Concomitant]

REACTIONS (1)
  - BACK PAIN [None]
